FAERS Safety Report 7652095-X (Version None)
Quarter: 2011Q3

REPORT INFORMATION
  Report Type: 
  Country: None (occurrence: None)
  Receive Date: 20110803
  Receipt Date: 20101206
  Transmission Date: 20111222
  Serious: Yes (Hospitalization)
  Sender: FDA-Public Use
  Company Number: US-BAYER-201039622NA

PATIENT
  Sex: Female

DRUGS (2)
  1. NEXAVAR [Suspect]
     Indication: PANCREATIC CARCINOMA
     Dosage: 200 MG, BID
     Dates: start: 20101028
  2. NEXAVAR [Suspect]
     Dosage: 400 MG, BID
     Dates: start: 20101103, end: 20101126

REACTIONS (5)
  - AMMONIA INCREASED [None]
  - NAUSEA [None]
  - GENERAL PHYSICAL HEALTH DETERIORATION [None]
  - ABDOMINAL PAIN [None]
  - VOMITING [None]
